FAERS Safety Report 5816206-0 (Version None)
Quarter: 2008Q3

REPORT INFORMATION
  Report Type: 
  Country: None (occurrence: None)
  Receive Date: 20080721
  Receipt Date: 20080709
  Transmission Date: 20090109
  Serious: Yes (Hospitalization, Disabling)
  Sender: FDA-Public Use
  Company Number: B0528656A

PATIENT
  Age: 61 Year
  Sex: Female

DRUGS (7)
  1. ARIXTRA [Suspect]
     Indication: PULMONARY EMBOLISM
     Dosage: 10MG PER DAY
     Route: 058
     Dates: start: 20080516, end: 20080518
  2. PREVISCAN [Suspect]
     Indication: PULMONARY EMBOLISM
     Route: 048
     Dates: start: 20080516, end: 20080518
  3. KERLONE [Concomitant]
     Route: 065
  4. FLUOXETINE [Concomitant]
     Route: 065
  5. NEXIUM [Concomitant]
     Route: 065
  6. LASIX [Concomitant]
     Dosage: 80MG PER DAY
     Route: 065
  7. RISORDAN [Concomitant]
     Indication: HYPERTENSION
     Route: 065

REACTIONS (5)
  - APHASIA [None]
  - CEREBRAL HAEMORRHAGE [None]
  - HEADACHE [None]
  - HEMIANOPIA [None]
  - HEMIPLEGIA [None]
